FAERS Safety Report 13077122 (Version 1)
Quarter: 2016Q4

REPORT INFORMATION
  Report Type: Spontaneous
  Country: US (occurrence: US)
  Receive Date: 20161230
  Receipt Date: 20161230
  Transmission Date: 20170207
  Serious: No
  Sender: FDA-Public Use
  Company Number: US-SHIRE-US201620637

PATIENT
  Age: 24 Year
  Sex: Male
  Weight: 84.81 kg

DRUGS (7)
  1. VYVANSE [Suspect]
     Active Substance: LISDEXAMFETAMINE DIMESYLATE
     Dosage: 40 MG, 1X/DAY:QD
     Route: 048
     Dates: start: 20161226
  2. MELATONIN [Concomitant]
     Active Substance: MELATONIN
     Indication: SLEEP DISORDER
     Dosage: 6-9 MG, 1X/DAY:QD
     Route: 048
     Dates: start: 20161117
  3. MULTIVITAMIN                       /00097801/ [Concomitant]
     Active Substance: VITAMINS
     Indication: ATTENTION DEFICIT/HYPERACTIVITY DISORDER
     Dosage: UNK, 1X/DAY:QD
     Route: 048
     Dates: start: 20161117
  4. VYVANSE [Suspect]
     Active Substance: LISDEXAMFETAMINE DIMESYLATE
     Indication: ATTENTION DEFICIT/HYPERACTIVITY DISORDER
     Dosage: 30 MG, 1X/DAY:QD
     Route: 048
     Dates: start: 201609, end: 2016
  5. LAMICTAL [Concomitant]
     Active Substance: LAMOTRIGINE
     Indication: OFF LABEL USE
     Dosage: 25 MG, 1X/DAY:QD
     Route: 048
     Dates: start: 20161117
  6. VITAMIN D3 [Concomitant]
     Active Substance: CHOLECALCIFEROL
     Indication: ATTENTION DEFICIT/HYPERACTIVITY DISORDER
     Dosage: 10000 IU, 1X/DAY:QD
     Route: 048
     Dates: start: 20161117
  7. FISH OIL [Concomitant]
     Active Substance: FISH OIL
     Indication: ATTENTION DEFICIT/HYPERACTIVITY DISORDER
     Dosage: 4-5 GRAMS, 1X/DAY:QD
     Route: 048
     Dates: start: 20161117

REACTIONS (6)
  - Drug ineffective [Recovered/Resolved]
  - Drug effect increased [Not Recovered/Not Resolved]
  - Drug dose omission [Not Recovered/Not Resolved]
  - Decreased appetite [Not Recovered/Not Resolved]
  - Drug hypersensitivity [Not Recovered/Not Resolved]
  - Weight decreased [Not Recovered/Not Resolved]

NARRATIVE: CASE EVENT DATE: 2016
